FAERS Safety Report 24109363 (Version 1)
Quarter: 2024Q3

REPORT INFORMATION
  Report Type: Spontaneous
  Country: US (occurrence: None)
  Receive Date: 20240717
  Receipt Date: 20240717
  Transmission Date: 20241017
  Serious: No
  Sender: Public
  Company Number: None

PATIENT
  Age: 31 Year

DRUGS (1)
  1. HADLIMA [Suspect]
     Active Substance: ADALIMUMAB-BWWD

REACTIONS (4)
  - Headache [None]
  - Arthralgia [None]
  - Neck pain [None]
  - Hyperhidrosis [None]

NARRATIVE: CASE EVENT DATE: 20240717
